FAERS Safety Report 15953180 (Version 1)
Quarter: 2019Q1

REPORT INFORMATION
  Report Type: Spontaneous
  Country: US (occurrence: US)
  Receive Date: 20190212
  Receipt Date: 20190212
  Transmission Date: 20190417
  Serious: Yes (Other)
  Sender: FDA-Public Use
  Company Number: US-009507513-1902USA002668

PATIENT
  Sex: Female

DRUGS (6)
  1. CHLORPROMAZINE. [Suspect]
     Active Substance: CHLORPROMAZINE
  2. HALOPERIDOL. [Suspect]
     Active Substance: HALOPERIDOL
  3. ONDANSETRON [Suspect]
     Active Substance: ONDANSETRON
  4. REMERON [Suspect]
     Active Substance: MIRTAZAPINE
     Route: 048
  5. HYDROXYZINE [Suspect]
     Active Substance: HYDROXYZINE HYDROCHLORIDE
  6. PROMETHAZINE [Suspect]
     Active Substance: PROMETHAZINE\PROMETHAZINE HYDROCHLORIDE

REACTIONS (1)
  - Electrocardiogram QT prolonged [Unknown]
